FAERS Safety Report 9041068 (Version 1)
Quarter: 2013Q1

REPORT INFORMATION
  Report Type: Spontaneous
  Country: US (occurrence: None)
  Receive Date: 20130124
  Receipt Date: 20130124
  Transmission Date: 20140127
  Serious: Yes (Other)
  Sender: FDA-Public Use
  Company Number: None

PATIENT
  Age: 58 Year
  Sex: Female
  Weight: 52.16 kg

DRUGS (2)
  1. ACTONEL [Suspect]
     Indication: OSTEOPENIA
     Dosage: 150 MG  ONE @ MONTH  ONE @ MONTH
     Dates: start: 2010, end: 2012
  2. ACTONEL [Suspect]
     Indication: OSTEOPENIA
     Dosage: 35 MG  ONE @ WK
     Dates: start: 2008, end: 2010

REACTIONS (5)
  - Palpitations [None]
  - Gastric ulcer [None]
  - Barrett^s oesophagus [None]
  - Bursitis [None]
  - Loose tooth [None]
